FAERS Safety Report 7700654-8 (Version None)
Quarter: 2011Q3

REPORT INFORMATION
  Report Type: 
  Country: None (occurrence: None)
  Receive Date: 20110822
  Receipt Date: 20110822
  Transmission Date: 20111222
  Serious: Yes (Other)
  Sender: FDA-Public Use
  Company Number: None

PATIENT
  Age: 33 Year
  Sex: Male
  Weight: 87.089 kg

DRUGS (1)
  1. VYVANSE [Suspect]
     Indication: ATTENTION DEFICIT/HYPERACTIVITY DISORDER
     Dosage: 1
     Route: 048
     Dates: start: 20110815, end: 20110816

REACTIONS (5)
  - MUSCULAR WEAKNESS [None]
  - HEADACHE [None]
  - UNEVALUABLE EVENT [None]
  - LETHARGY [None]
  - HYPERTENSION [None]
